FAERS Safety Report 9294693 (Version 2)
Quarter: 2013Q2

REPORT INFORMATION
  Report Type: Spontaneous
  Country: US (occurrence: US)
  Receive Date: 20130517
  Receipt Date: 20130523
  Transmission Date: 20140414
  Serious: No
  Sender: FDA-Public Use
  Company Number: US-PFIZER INC-2013149177

PATIENT
  Age: 50 Year
  Sex: Female
  Weight: 88.89 kg

DRUGS (5)
  1. XELJANZ [Suspect]
     Indication: ARTHRALGIA
     Dosage: 5 MG, 2X/DAY
     Route: 048
     Dates: start: 20130501, end: 20130513
  2. XELJANZ [Suspect]
     Indication: JOINT SWELLING
  3. XELJANZ [Suspect]
     Indication: RHEUMATOID ARTHRITIS
  4. SINGULAIR [Concomitant]
     Indication: HYPERSENSITIVITY
     Dosage: 10 MG, 1X/DAY
  5. SYNTHROID [Concomitant]
     Indication: HYPOTHYROIDISM
     Dosage: 150 UG, 1X/DAY

REACTIONS (2)
  - Chronic sinusitis [Unknown]
  - Drug ineffective [Unknown]
